FAERS Safety Report 5411384-X (Version None)
Quarter: 2007Q3

REPORT INFORMATION
  Report Type: 
  Country: None (occurrence: None)
  Receive Date: 20070810
  Receipt Date: 20070807
  Transmission Date: 20080115
  Serious: Yes (Hospitalization, Other)
  Sender: FDA-Public Use
  Company Number: JP-BRISTOL-MYERS SQUIBB COMPANY-13867627

PATIENT
  Age: 64 Year
  Sex: Male

DRUGS (1)
  1. MONOPRIL [Suspect]
     Indication: BLOOD PRESSURE INCREASED
     Dates: start: 20041122

REACTIONS (2)
  - OEDEMA MUCOSAL [None]
  - PHARYNGEAL OEDEMA [None]
